FAERS Safety Report 21660539 (Version 1)
Quarter: 2022Q4

REPORT INFORMATION
  Report Type: Report from Study
  Country: CA (occurrence: CA)
  Receive Date: 20221130
  Receipt Date: 20221130
  Transmission Date: 20230113
  Serious: Yes (Other)
  Sender: FDA-Public Use
  Company Number: CA-JNJFOC-20221163043

PATIENT
  Age: 59 Year
  Sex: Female

DRUGS (1)
  1. REMICADE [Suspect]
     Active Substance: INFLIXIMAB
     Indication: Crohn^s disease
     Dosage: ON 26-NOV-2022, RECEIVED 212TH INFLIXIMAB, RECOMBINANT INFUSION OF 500MG AND PARTIAL HARVEY-BRADSHAW
     Route: 041
     Dates: start: 20050518

REACTIONS (3)
  - Crohn^s disease [Recovering/Resolving]
  - Influenza [Recovered/Resolved]
  - Feeding disorder [Unknown]

NARRATIVE: CASE EVENT DATE: 20221101
